FAERS Safety Report 23310090 (Version 1)
Quarter: 2023Q4

REPORT INFORMATION
  Report Type: Spontaneous
  Country: CN (occurrence: CN)
  Receive Date: 20231218
  Receipt Date: 20231218
  Transmission Date: 20240109
  Serious: Yes (Other)
  Sender: FDA-Public Use
  Company Number: CN-AMERICAN REGENT, INC.-2023ARI00022

PATIENT
  Sex: Female

DRUGS (3)
  1. PACLITAXEL [Suspect]
     Active Substance: PACLITAXEL
     Indication: Hyperthermic chemotherapy
     Dosage: 175 MG/M2
     Route: 033
  2. PACLITAXEL [Suspect]
     Active Substance: PACLITAXEL
     Dosage: 200 MG/M2
     Route: 033
  3. CISPLATIN [Suspect]
     Active Substance: CISPLATIN
     Indication: Hyperthermic chemotherapy
     Dosage: 75 MG/M2
     Route: 033

REACTIONS (1)
  - Acute kidney injury [Unknown]
